FAERS Safety Report 8479995-5 (Version None)
Quarter: 2012Q2

REPORT INFORMATION
  Report Type: 
  Country: None (occurrence: None)
  Receive Date: 20120629
  Receipt Date: 20120621
  Transmission Date: 20120825
  Serious: Yes (Other)
  Sender: FDA-Public Use
  Company Number: US-ABBOTT-12P-163-0948639-00

PATIENT
  Age: 59 Year
  Sex: Female

DRUGS (3)
  1. CALTRATE PLUS-D [Concomitant]
     Indication: PRODUCT USED FOR UNKNOWN INDICATION
     Dosage: TWO TABLETS DAILY
  2. VITAMIN D [Concomitant]
     Indication: PRODUCT USED FOR UNKNOWN INDICATION
     Dosage: 5000 IU DAILY
  3. HUMIRA [Suspect]
     Indication: RHEUMATOID ARTHRITIS
     Dates: start: 20100101

REACTIONS (9)
  - CARPAL TUNNEL SYNDROME [None]
  - JOINT LOCK [None]
  - ARTHRALGIA [None]
  - LIGAMENT SPRAIN [None]
  - TRIGGER FINGER [None]
  - JOINT STIFFNESS [None]
  - MENISCUS LESION [None]
  - NAUSEA [None]
  - DIZZINESS [None]
